FAERS Safety Report 18358105 (Version 1)
Quarter: 2020Q4

REPORT INFORMATION
  Report Type: Spontaneous
  Country: CN (occurrence: CN)
  Receive Date: 20201007
  Receipt Date: 20201007
  Transmission Date: 20210114
  Serious: Yes (Other)
  Sender: FDA-Public Use
  Company Number: CN-BAXTER-2020BAX020110

PATIENT
  Age: 2 Year
  Sex: Male
  Weight: 16.2 kg

DRUGS (26)
  1. 0.9% SODIUM CHLORIDE INJECTION [Suspect]
     Active Substance: SODIUM CHLORIDE
     Indication: MEDICATION DILUTION
     Dosage: METHOTREXATE 9 MG + DEXAMETHASONE SODIUM PHOSPHATE 1 MG + 0.9% SODIUM CHLORIDE 3ML
     Route: 037
     Dates: start: 20200806, end: 20200806
  2. DEXAMETHASONE SODIUM PHOSPHATE. [Suspect]
     Active Substance: DEXAMETHASONE SODIUM PHOSPHATE
     Dosage: METHOTREXATE + DEXAMETHASONE SODIUM PHOSPHATE + 0.9% SODIUM CHLORIDE; DOSE REINTRODUCED
     Route: 037
  3. 0.9% SODIUM CHLORIDE INJECTION [Suspect]
     Active Substance: SODIUM CHLORIDE
     Dosage: CYCLOPHOSPHAMIDE + 0.9% SODIUM CHLORIDE; DOSE REINTRODUCED
     Route: 041
  4. 0.9% SODIUM CHLORIDE INJECTION [Suspect]
     Active Substance: SODIUM CHLORIDE
     Dosage: VINCRISTINE + 0.9% SODIUM CHLORIDE; DOSE REINTRODUCED
     Route: 042
  5. 5% GLUCOSE  INJECTION [Suspect]
     Active Substance: DEXTROSE
     Dosage: CYTARABINE + 5% GLUCOSE; DOSE REINTRODUCED
     Route: 041
  6. DEXAMETHASONE SODIUM PHOSPHATE. [Suspect]
     Active Substance: DEXAMETHASONE SODIUM PHOSPHATE
     Indication: ACUTE LYMPHOCYTIC LEUKAEMIA
     Dosage: CYTOSAR 0.025G + DEXAMETHASONE SODIUM PHOSPHATE 1 MG + 0.9% SODIUM CHLORIDE 3ML
     Route: 037
     Dates: start: 20200806, end: 20200806
  7. DEXAMETHASONE SODIUM PHOSPHATE. [Suspect]
     Active Substance: DEXAMETHASONE SODIUM PHOSPHATE
     Dosage: CYTOSAR + DEXAMETHASONE SODIUM PHOSPHATE + 0.9% SODIUM CHLORIDE; DOSE REINTRODUCED
     Route: 037
  8. CYTOSAR [Suspect]
     Active Substance: CYTARABINE
     Dosage: CYTARABINE 0.025G + 5% GLUCOSE 100ML
     Route: 041
     Dates: start: 20200806, end: 20200813
  9. CYTOSAR [Suspect]
     Active Substance: CYTARABINE
     Dosage: CYTOSAR + DEXAMETHASONE SODIUM PHOSPHATE + 0.9% SODIUM CHLORIDE ; DOSE REINTRODUCED
     Route: 037
  10. 0.9% SODIUM CHLORIDE INJECTION [Suspect]
     Active Substance: SODIUM CHLORIDE
     Dosage: METHOTREXATE + DEXAMETHASONE SODIUM PHOSPHATE + 0.9% SODIUM CHLORIDE; DOSE REINTRODUCED
     Route: 037
  11. CYTOSAR [Suspect]
     Active Substance: CYTARABINE
     Dosage: CYTARABINE + 5% GLUCOSE; DOSE REINTRODUCED
     Route: 041
  12. ENDOXAN [Suspect]
     Active Substance: CYCLOPHOSPHAMIDE
     Indication: ACUTE LYMPHOCYTIC LEUKAEMIA
     Dosage: CYCLOPHOSPHAMIDE 0.66G + 0.9% SODIUM CHLORIDE 250ML
     Route: 041
     Dates: start: 20200806, end: 20200806
  13. 0.9% SODIUM CHLORIDE INJECTION [Suspect]
     Active Substance: SODIUM CHLORIDE
     Dosage: VINCRISTINE1 MG + 0.9% SODIUM CHLORIDE10ML
     Route: 042
     Dates: start: 20200806, end: 20200806
  14. DEXAMETHASONE SODIUM PHOSPHATE. [Suspect]
     Active Substance: DEXAMETHASONE SODIUM PHOSPHATE
     Dosage: METHOTREXATE 9 MG + DEXAMETHASONE SODIUM PHOSPHATE 1 MG + 0.9% SODIUM CHLORIDE 3ML
     Route: 037
     Dates: start: 20200806, end: 20200806
  15. 5% GLUCOSE  INJECTION [Suspect]
     Active Substance: DEXTROSE
     Indication: MEDICATION DILUTION
     Dosage: CYTARABINE 0.025G + 5% GLUCOSE 100ML
     Route: 041
     Dates: start: 20200806, end: 20200813
  16. VINCRISTINE SULFATE. [Suspect]
     Active Substance: VINCRISTINE SULFATE
     Dosage: VINCRISTINE + 0.9% SODIUM CHLORIDE; DOSE REINTRODUCED
     Route: 042
  17. 0.9% SODIUM CHLORIDE INJECTION [Suspect]
     Active Substance: SODIUM CHLORIDE
     Dosage: CYTOSAR 0.025 G + DEXAMETHASONE SODIUM PHOSPHATE 1 MG + 0.9% SODIUM CHLORIDE 3ML
     Route: 037
     Dates: start: 20200806, end: 20200806
  18. 0.9% SODIUM CHLORIDE INJECTION [Suspect]
     Active Substance: SODIUM CHLORIDE
     Dosage: CYCLOPHOSPHAMIDE 0.66G + 0.9% SODIUM CHLORIDE 250ML
     Route: 041
     Dates: start: 20200806, end: 20200806
  19. 0.9% SODIUM CHLORIDE INJECTION [Suspect]
     Active Substance: SODIUM CHLORIDE
     Dosage: CYTOSAR + DEXAMETHASONE SODIUM PHOSPHATE + 0.9% SODIUM CHLORIDE; DOSE REINTRODUCED
     Route: 037
  20. VINCRISTINE SULFATE. [Suspect]
     Active Substance: VINCRISTINE SULFATE
     Indication: ACUTE LYMPHOCYTIC LEUKAEMIA
     Dosage: VINCRISTINE1 MG + 0.9% SODIUM CHLORIDE10 ML
     Route: 042
     Dates: start: 20200806, end: 20200806
  21. VINCRISTINE SULFATE. [Suspect]
     Active Substance: VINCRISTINE SULFATE
     Dosage: VINCRISTINE1 MG + 0.9% SODIUM CHLORIDE10ML
     Route: 042
     Dates: start: 20200813, end: 20200813
  22. ENDOXAN [Suspect]
     Active Substance: CYCLOPHOSPHAMIDE
     Dosage: DOSE RE-INTRODUCED; CYCLOPHOSPHAMIDE + 0.9% SODIUM CHLORIDE
     Route: 041
  23. 0.9% SODIUM CHLORIDE INJECTION [Suspect]
     Active Substance: SODIUM CHLORIDE
     Dosage: VINCRISTINE1 MG + 0.9% SODIUM CHLORIDE10ML
     Route: 042
     Dates: start: 20200813, end: 20200813
  24. METHOTREXATE. [Suspect]
     Active Substance: METHOTREXATE
     Indication: ACUTE LYMPHOCYTIC LEUKAEMIA
     Dosage: METHOTREXATE 9 MG + DEXAMETHASONE SODIUM PHOSPHATE 1 MG + 0.9% SODIUM CHLORIDE 3ML
     Route: 037
     Dates: start: 20200806, end: 20200806
  25. METHOTREXATE. [Suspect]
     Active Substance: METHOTREXATE
     Dosage: METHOTREXATE + DEXAMETHASONE SODIUM PHOSPHATE + 0.9% SODIUM CHLORIDE; DOSE REINTRODUCED
     Route: 037
  26. CYTOSAR [Suspect]
     Active Substance: CYTARABINE
     Indication: ACUTE LYMPHOCYTIC LEUKAEMIA
     Dosage: CYTOSAR 0.025 G + DEXAMETHASONE SODIUM PHOSPHATE INJECTION 1 MG + 0.9% SODIUM CHLORIDE INJECTION 3ML
     Route: 037
     Dates: start: 20200806, end: 20200806

REACTIONS (1)
  - Myelosuppression [Recovering/Resolving]

NARRATIVE: CASE EVENT DATE: 20200816
